FAERS Safety Report 19084787 (Version 2)
Quarter: 2021Q2

REPORT INFORMATION
  Report Type: Spontaneous
  Country: US (occurrence: US)
  Receive Date: 20210401
  Receipt Date: 20210416
  Transmission Date: 20210717
  Serious: Yes (Other)
  Sender: FDA-Public Use
  Company Number: US-RIGEL PHARMACEUTICALS, INC.-2021FOS000183

PATIENT
  Age: 53 Year
  Sex: Female

DRUGS (2)
  1. TAVALISSE [Suspect]
     Active Substance: FOSTAMATINIB
     Indication: IMMUNE THROMBOCYTOPENIA
     Dosage: 100 MG, QD IN THE MORNING
     Route: 048
     Dates: start: 202001
  2. TAVALISSE [Suspect]
     Active Substance: FOSTAMATINIB
     Indication: IRON DEFICIENCY ANAEMIA
     Dosage: 150 MG, QD IN THE EVENINGS
     Route: 048
     Dates: start: 202001

REACTIONS (5)
  - Intentional product misuse [Unknown]
  - Foot fracture [Recovering/Resolving]
  - Dizziness [Unknown]
  - Product dose omission issue [Unknown]
  - Platelet count decreased [Unknown]

NARRATIVE: CASE EVENT DATE: 202001
